FAERS Safety Report 8454908-0 (Version None)
Quarter: 2012Q2

REPORT INFORMATION
  Report Type: 
  Country: None (occurrence: None)
  Receive Date: 20120621
  Receipt Date: 20120613
  Transmission Date: 20120825
  Serious: Yes (Hospitalization)
  Sender: FDA-Public Use
  Company Number: US-BAYER-2012-016147

PATIENT
  Age: 31 Year
  Sex: Female
  Weight: 56.689 kg

DRUGS (3)
  1. HYDROCODONE BITARTRATE AND ACETAMINOPHEN [Concomitant]
     Dosage: 5-500
  2. YAZ [Suspect]
     Dosage: UNK
     Dates: start: 20070101, end: 20070501
  3. DICYCLOMINE [Concomitant]
     Dosage: 20 MG, UNK

REACTIONS (6)
  - ANXIETY [None]
  - BILIARY DYSKINESIA [None]
  - INJURY [None]
  - DEPRESSION [None]
  - PAIN [None]
  - GALLBLADDER DISORDER [None]
